FAERS Safety Report 26102219 (Version 1)
Quarter: 2025Q4

REPORT INFORMATION
  Report Type: Spontaneous
  Country: EU (occurrence: EU)
  Receive Date: 20251128
  Receipt Date: 20251128
  Transmission Date: 20260117
  Serious: Yes (Other)
  Sender: SANDOZ
  Company Number: EU-ABBVIE-6463787

PATIENT
  Age: 26 Year
  Sex: Female
  Weight: 53 kg

DRUGS (13)
  1. ADALIMUMAB [Suspect]
     Active Substance: ADALIMUMAB
     Dosage: 40 MG, QW
     Route: 058
     Dates: start: 202312, end: 202405
  2. ADALIMUMAB [Suspect]
     Active Substance: ADALIMUMAB
     Dosage: 40 MG, Q2W
     Route: 058
  3. ADALIMUMAB [Suspect]
     Active Substance: ADALIMUMAB
     Dosage: 40 MG
     Route: 058
     Dates: start: 202312, end: 202405
  4. ADALIMUMAB [Suspect]
     Active Substance: ADALIMUMAB
     Dosage: 80 MG
     Route: 058
  5. ADALIMUMAB [Suspect]
     Active Substance: ADALIMUMAB
     Indication: Crohn^s disease
     Dosage: 160/80 MG
     Route: 058
  6. INFLIXIMAB [Suspect]
     Active Substance: INFLIXIMAB
     Indication: Crohn^s disease
     Dosage: 5  MG/KG
     Route: 065
     Dates: start: 201908
  7. INFLIXIMAB [Suspect]
     Active Substance: INFLIXIMAB
     Dosage: 5  MG/KG
     Route: 065
     Dates: start: 202205
  8. UPADACITINIB [Suspect]
     Active Substance: UPADACITINIB
     Dosage: 260 MG
     Route: 042
     Dates: start: 202206
  9. UPADACITINIB [Suspect]
     Active Substance: UPADACITINIB
     Indication: Crohn^s disease
     Dosage: 30 MG, QD
     Route: 048
     Dates: start: 202405
  10. UPADACITINIB [Suspect]
     Active Substance: UPADACITINIB
     Dosage: 45 MG, QD
     Route: 048
     Dates: start: 202407, end: 202409
  11. UPADACITINIB [Suspect]
     Active Substance: UPADACITINIB
     Dosage: 90 MG
     Route: 058
     Dates: start: 202210
  12. USTEKINUMAB [Suspect]
     Active Substance: USTEKINUMAB
     Indication: Crohn^s disease
     Dosage: 260 MG
     Route: 042
     Dates: start: 202206
  13. USTEKINUMAB [Suspect]
     Active Substance: USTEKINUMAB
     Dosage: 90 MG
     Route: 058
     Dates: start: 202210

REACTIONS (7)
  - Varicella meningitis [Recovered/Resolved]
  - Varicella zoster virus infection [Recovered/Resolved]
  - Crohn^s disease [Unknown]
  - Therapeutic product effect decreased [Unknown]
  - Faecal calprotectin increased [Unknown]
  - Drug ineffective [Unknown]
  - Product use issue [Unknown]

NARRATIVE: CASE EVENT DATE: 20240901
